FAERS Safety Report 10221456 (Version 2)
Quarter: 2014Q2

REPORT INFORMATION
  Report Type: Spontaneous
  Country: US (occurrence: US)
  Receive Date: 20140605
  Receipt Date: 20140605
  Transmission Date: 20141212
  Serious: Yes (Life-Threatening)
  Sender: FDA-Public Use
  Company Number: US-PFIZER INC-2014127320

PATIENT
  Sex: Male

DRUGS (11)
  1. TESTOSTERONE CIPIONATE [Suspect]
     Dosage: 200 MG, UNK
     Dates: start: 200401
  2. TESTOSTERONE CIPIONATE [Suspect]
     Dosage: UNK
     Dates: start: 200606
  3. TESTOSTERONE CIPIONATE [Suspect]
     Dosage: UNK
     Dates: start: 200611
  4. TESTOSTERONE CIPIONATE [Suspect]
     Dosage: UNK
     Dates: start: 200612
  5. TESTOSTERONE CIPIONATE [Suspect]
     Dosage: UNK
     Dates: start: 200702
  6. TESTOSTERONE CIPIONATE [Suspect]
     Dosage: UNK
     Dates: start: 200807
  7. TESTOSTERONE CIPIONATE [Suspect]
     Dosage: UNK
     Dates: start: 200810
  8. TESTOSTERONE CIPIONATE [Suspect]
     Dosage: UNK
     Dates: start: 200811
  9. TESTOSTERONE CIPIONATE [Suspect]
     Dosage: UNK
     Dates: start: 200904
  10. TESTOSTERONE CIPIONATE [Suspect]
     Dosage: UNK
     Dates: start: 200905
  11. TESTOSTERONE CIPIONATE [Suspect]
     Dosage: UNK
     Dates: start: 200906

REACTIONS (1)
  - Myocardial infarction [Unknown]
